FAERS Safety Report 4991171-7 (Version None)
Quarter: 2006Q2

REPORT INFORMATION
  Report Type: 
  Country: None (occurrence: None)
  Receive Date: 20060427
  Receipt Date: 20060418
  Transmission Date: 20061013
  Serious: Yes (Hospitalization)
  Sender: FDA-Public Use
  Company Number: 2006053284

PATIENT
  Age: 83 Year
  Sex: Female

DRUGS (15)
  1. VIBRAMYCIN [Suspect]
     Indication: UPPER RESPIRATORY TRACT INFECTION
     Dosage: 100 MG (100 MG), ORAL
     Route: 048
     Dates: start: 20060121, end: 20060123
  2. ALLOPURINOL [Suspect]
     Indication: ILL-DEFINED DISORDER
     Dosage: 100 MG (10 MG), ORAL
     Route: 048
     Dates: end: 20060129
  3. SELOKEN ZOC (METOPROLOL SUCCINATE) [Concomitant]
  4. RAMIPRIL [Concomitant]
  5. SIMVASTATIN [Concomitant]
  6. COCILLANA-ETYFIN (ETHYLMORPHINE HYDROCHLORIDE, EXTRACTUM FLUIDUM SENEG [Concomitant]
  7. DIAZEPAM [Concomitant]
  8. DIGOXIN [Concomitant]
  9. PREDNISOLON (PRENISOLONE) [Concomitant]
  10. EUSAPRIM FORTE (SULFAMETHOXAZOLE, TRIMETHOPRIM) [Concomitant]
  11. FUROSEMIDE [Concomitant]
  12. ACETYLCYSTEINE [Concomitant]
  13. DOXYFERM (DOXYCYCLINE MONOHYDRATE) [Concomitant]
  14. ACYCLOVIR [Concomitant]
  15. ZOPICLONE (ZOPICLONE) [Concomitant]

REACTIONS (7)
  - DRUG HYPERSENSITIVITY [None]
  - EYE PRURITUS [None]
  - GENERAL PHYSICAL HEALTH DETERIORATION [None]
  - OCULAR HYPERAEMIA [None]
  - RASH [None]
  - STEVENS-JOHNSON SYNDROME [None]
  - TOXIC EPIDERMAL NECROLYSIS [None]
